FAERS Safety Report 11599745 (Version 2)
Quarter: 2015Q4

REPORT INFORMATION
  Report Type: Spontaneous
  Country: US (occurrence: US)
  Receive Date: 20151006
  Receipt Date: 20151020
  Transmission Date: 20160304
  Serious: Yes (Hospitalization, Other)
  Sender: FDA-Public Use
  Company Number: US-GILEAD-2015-0175080

PATIENT
  Age: 72 Year
  Sex: Male

DRUGS (12)
  1. MULTIVITAMIN AND MINERAL [Concomitant]
     Dosage: UNK, QD
     Route: 048
  2. ZINC SULFATE [Concomitant]
     Active Substance: ZINC SULFATE\ZINC SULFATE ANHYDROUS
     Dosage: 50 MG, BID
     Route: 048
  3. CIPRO                              /00697201/ [Concomitant]
     Active Substance: CIPROFLOXACIN
     Dosage: 500 MG, QD
     Route: 048
  4. PRILOSEC [Concomitant]
     Active Substance: OMEPRAZOLE MAGNESIUM
     Dosage: 20 MG, QD
     Route: 048
  5. RIFAXIMIN [Concomitant]
     Active Substance: RIFAXIMIN
     Dosage: 550 MG, BID
     Route: 048
  6. LASIX [Concomitant]
     Active Substance: FUROSEMIDE
     Dosage: 80 MG, QD
     Route: 048
  7. MIRTAZAPINE. [Concomitant]
     Active Substance: MIRTAZAPINE
     Dosage: 7.5 MG, QHS
     Route: 048
  8. ZOFRAN [Concomitant]
     Active Substance: ONDANSETRON HYDROCHLORIDE
     Dosage: 4 MG, PRN
     Route: 048
  9. HARVONI [Suspect]
     Active Substance: LEDIPASVIR\SOFOSBUVIR
     Indication: CHRONIC HEPATITIS C
     Dosage: 1 DF, QD
     Route: 048
     Dates: start: 201505
  10. TAMSULOSIN [Concomitant]
     Active Substance: TAMSULOSIN
     Dosage: 0.4 MG, QD
     Route: 048
  11. DYRENIUM [Concomitant]
     Active Substance: TRIAMTERENE
     Dosage: 100 MG, BID
     Route: 048
  12. KRISTALOSE [Concomitant]
     Active Substance: LACTULOSE
     Dosage: 40 G, TID
     Route: 048

REACTIONS (10)
  - Pyrexia [Unknown]
  - Fall [Unknown]
  - Blood bilirubin increased [Unknown]
  - Ammonia increased [Unknown]
  - Ear infection [Unknown]
  - Pneumonia [Unknown]
  - Musculoskeletal chest pain [Unknown]
  - Confusional state [Unknown]
  - Contusion [Unknown]
  - Hallucination [Unknown]

NARRATIVE: CASE EVENT DATE: 2015
